FAERS Safety Report 14771646 (Version 3)
Quarter: 2021Q2

REPORT INFORMATION
  Report Type: Spontaneous
  Country: US (occurrence: US)
  Receive Date: 20180417
  Receipt Date: 20210413
  Transmission Date: 20210716
  Serious: No
  Sender: FDA-Public Use
  Company Number: US-ALLERGAN-1800530US

PATIENT
  Age: 74 Year
  Sex: Female

DRUGS (3)
  1. LATISSE [Suspect]
     Active Substance: BIMATOPROST
     Indication: GROWTH OF EYELASHES
     Dosage: 3 DROPS PER EYE LID; MOST EVER 4
     Route: 061
     Dates: start: 201710
  2. COMFORT GEL [Concomitant]
     Indication: DRY EYE
     Dosage: ONCE OR TWICE
     Route: 047
  3. EQUATE [Concomitant]
     Indication: DRY EYE
     Dosage: ONCE OR TWICE
     Route: 047

REACTIONS (10)
  - Accidental exposure to product [Unknown]
  - Product complaint [Unknown]
  - Asthenopia [Not Recovered/Not Resolved]
  - Wrong technique in product usage process [Unknown]
  - Eye pain [Not Recovered/Not Resolved]
  - Headache [Not Recovered/Not Resolved]
  - Burning sensation [Not Recovered/Not Resolved]
  - Drug ineffective [Unknown]
  - Incorrect dose administered [Unknown]
  - Dry eye [Not Recovered/Not Resolved]

NARRATIVE: CASE EVENT DATE: 201710
